FAERS Safety Report 6798197-1 (Version None)
Quarter: 2010Q2

REPORT INFORMATION
  Report Type: 
  Country: None (occurrence: None)
  Receive Date: 20100622
  Receipt Date: 20100518
  Transmission Date: 20101027
  Serious: Yes (Hospitalization)
  Sender: FDA-Public Use
  Company Number: AUR-APL-2010-01315

PATIENT
  Age: 61 Year
  Sex: Female
  Weight: 66 kg

DRUGS (12)
  1. METOPROLOL TABLET [Suspect]
     Dosage: 25MG, BID, ORAL
     Route: 048
     Dates: start: 20100225, end: 20100514
  2. SITAXSENTAN (PFIZER) [Suspect]
     Indication: PULMONARY ARTERIAL HYPERTENSION
     Dosage: 100MG, DAILY, ORAL
     Route: 048
     Dates: start: 20100118
  3. DILTIAZEM XR TABS [Suspect]
     Dosage: 240MG, DAILY, ORAL
     Route: 048
     Dates: start: 20100429, end: 20100506
  4. SILDENAFIL [Suspect]
     Indication: PULMONARY ARTERIAL HYPERTENSION
     Dosage: 20MG, TID, ORAL
     Route: 048
     Dates: start: 20100118
  5. ONDANSETRON [Concomitant]
  6. ACETAMINOPHEN [Concomitant]
  7. MORPHINE [Concomitant]
  8. CLINDAMYCIN [Concomitant]
  9. ACETAMINOPHEN AND CODEINE PHOSPHATE [Concomitant]
  10. DUCOSATE [Concomitant]
  11. ALPRAZOLAM [Concomitant]
  12. LEVOTHYROXINE SODIUM [Concomitant]

REACTIONS (7)
  - BRADYCARDIA [None]
  - BREAST CANCER [None]
  - HAEMORRHAGIC ANAEMIA [None]
  - HYPOTENSION [None]
  - POST PROCEDURAL HAEMATOMA [None]
  - PROCEDURAL DIZZINESS [None]
  - SUPRAVENTRICULAR TACHYCARDIA [None]
